FAERS Safety Report 5213955-2 (Version None)
Quarter: 2007Q1

REPORT INFORMATION
  Report Type: 
  Country: None (occurrence: None)
  Receive Date: 20070122
  Receipt Date: 20070115
  Transmission Date: 20070707
  Serious: Yes (Hospitalization)
  Sender: FDA-Public Use
  Company Number: BE-BAYER-200616370GDS

PATIENT
  Age: 72 Year
  Sex: Female
  Weight: 46 kg

DRUGS (18)
  1. SORAFENIB [Suspect]
     Indication: NON-SMALL CELL LUNG CANCER
     Dosage: TOTAL DAILY DOSE: 800 MG
     Route: 048
     Dates: start: 20061108, end: 20061124
  2. SORAFENIB [Suspect]
     Dosage: TOTAL DAILY DOSE: 800 MG
     Route: 048
     Dates: start: 20061129
  3. SORAFENIB [Suspect]
     Dosage: TOTAL DAILY DOSE: 800 MG
     Route: 048
     Dates: start: 20061018, end: 20061104
  4. CARBOPLATIN [Suspect]
     Indication: NON-SMALL CELL LUNG CANCER
     Route: 042
     Dates: start: 20061017, end: 20061017
  5. CARBOPLATIN [Suspect]
     Route: 042
     Dates: start: 20061107, end: 20061107
  6. CARBOPLATIN [Suspect]
     Route: 042
     Dates: start: 20061128, end: 20061128
  7. PACLITAXEL [Suspect]
     Indication: NON-SMALL CELL LUNG CANCER
     Dosage: UNIT DOSE: 200 MG/M2
     Route: 042
     Dates: start: 20061017, end: 20061017
  8. PACLITAXEL [Suspect]
     Dosage: UNIT DOSE: 200 MG/M2
     Route: 042
     Dates: start: 20061128, end: 20061128
  9. PACLITAXEL [Suspect]
     Dosage: UNIT DOSE: 200 MG/M2
     Route: 042
     Dates: start: 20061107, end: 20061107
  10. FRUSAMIL [Concomitant]
     Indication: HYPERTENSION
     Route: 048
     Dates: start: 20060101
  11. CETIRIZINE HCL [Concomitant]
     Indication: HYPERSENSITIVITY
     Route: 048
     Dates: start: 20061027
  12. RIVOTRIL [Concomitant]
     Indication: DEPRESSION
     Route: 048
     Dates: start: 20061122
  13. LORAZEPAM [Concomitant]
     Indication: INSOMNIA
     Route: 048
     Dates: start: 20061122
  14. TARIVID [Concomitant]
     Indication: PROPHYLAXIS
     Route: 048
     Dates: start: 20061122, end: 20061128
  15. SPORANOX [Concomitant]
     Indication: PROPHYLAXIS
     Route: 048
     Dates: start: 20061122, end: 20061128
  16. ATARAX [Concomitant]
     Indication: DEPRESSION
     Route: 048
     Dates: start: 20061030
  17. PERIACTIN [Concomitant]
     Indication: ANOREXIA
     Route: 048
     Dates: start: 20061122
  18. ZOMETA [Concomitant]
     Indication: METASTASES TO BONE
     Route: 042
     Dates: start: 20061017, end: 20061017

REACTIONS (6)
  - ANOREXIA [None]
  - ASTHENIA [None]
  - FATIGUE [None]
  - GENERAL PHYSICAL HEALTH DETERIORATION [None]
  - PALMAR-PLANTAR ERYTHRODYSAESTHESIA SYNDROME [None]
  - WEIGHT DECREASED [None]
